FAERS Safety Report 17330800 (Version 20)
Quarter: 2022Q1

REPORT INFORMATION
  Report Type: Report from Study
  Country: GB (occurrence: GB)
  Receive Date: 20200128
  Receipt Date: 20220121
  Transmission Date: 20220423
  Serious: Yes (Hospitalization, Disabling, Other)
  Sender: FDA-Public Use
  Company Number: GB-002147023-PHHY2019GB207337

PATIENT
  Age: 8 Year
  Sex: Female
  Weight: 23.35 kg

DRUGS (67)
  1. RANITIDINE [Suspect]
     Active Substance: RANITIDINE
     Indication: Gastrooesophageal reflux disease
     Dosage: UNK, QD (UNK, BID)
     Route: 048
  2. RANITIDINE [Suspect]
     Active Substance: RANITIDINE
     Dosage: 50 MILLIGRAM, QH (1 DOSE 12 HOURS )STARTED ON 18-OCT-2019
     Route: 048
  3. RANITIDINE [Suspect]
     Active Substance: RANITIDINE
     Dosage: 50 MILLIGRAM, BID, STARTED ON 18-OCT-2019
     Route: 048
  4. RANITIDINE [Suspect]
     Active Substance: RANITIDINE
     Dosage: UNK, QD
  5. EVEROLIMUS [Suspect]
     Active Substance: EVEROLIMUS
     Indication: Brain stem glioma
     Dosage: 5 MG MONDAY TO SATURDAY AND 2.5 MG SUNDAY/17-JUL-2019
     Route: 048
  6. EVEROLIMUS [Suspect]
     Active Substance: EVEROLIMUS
     Dosage: 2.5 MILLIGRAM ON TUESDAY,THURSDAY,SATURDAY, SUNDAY/07-FEB-2021
     Route: 048
  7. EVEROLIMUS [Suspect]
     Active Substance: EVEROLIMUS
     Dosage: 2.5 MILLIGRAM ON TUESDAY,THURSDAY,SATURDAY, SUNDAY/17-JUL-2019
     Dates: end: 20191014
  8. EVEROLIMUS [Suspect]
     Active Substance: EVEROLIMUS
     Dosage: 5 MILLIGRAM, QD ON MONDAY, WEDNESDAY, FRIDAY/01-OCT-2019
     Route: 048
  9. EVEROLIMUS [Suspect]
     Active Substance: EVEROLIMUS
     Dosage: 2.5 MILLIGRAM, QD 2.5 MG TUESDAY/THURSDAY/SATURDAY/SUNDAY/12-FEB-2020
     Route: 048
  10. EVEROLIMUS [Suspect]
     Active Substance: EVEROLIMUS
     Dosage: 2.5 MILLIGRAM, QD TUESDAY, THURSDAY, SATURDAY, SUNDAY/01-OCT-2019
     Route: 048
  11. EVEROLIMUS [Suspect]
     Active Substance: EVEROLIMUS
     Dosage: 5 MG ON MONDAY, WEDNESDAY AND FRIDAY/07-FEB-2020
     Route: 048
  12. EVEROLIMUS [Suspect]
     Active Substance: EVEROLIMUS
     Dosage: 5MG MONDAY/WEDNESDAY/FRIDAY/12-FEB-2020
     Route: 048
  13. EVEROLIMUS [Suspect]
     Active Substance: EVEROLIMUS
     Dosage: 5 MILLIGRAM/17-JUL-2019
     Route: 048
     Dates: end: 20200207
  14. EVEROLIMUS [Suspect]
     Active Substance: EVEROLIMUS
     Dosage: 2.5 MILLIGRAM, QD TUESDAY, THURSDAY, SATURDAY, SUNDAY/13-FEB-2020
     Route: 048
  15. EVEROLIMUS [Suspect]
     Active Substance: EVEROLIMUS
     Dosage: 2.5 MILLIGRAM/18-JUL-2019
     Route: 048
     Dates: end: 20200207
  16. EVEROLIMUS [Suspect]
     Active Substance: EVEROLIMUS
     Dosage: 5 MILLIGRAM, QD (MONDAY,WEDNESDAY, FRIDAY, 2.5 MG)/17-JUL-2019
     Route: 048
     Dates: end: 20191014
  17. EVEROLIMUS [Suspect]
     Active Substance: EVEROLIMUS
     Dosage: 5 MG MONDAY TO SATURDAY AND 2.5 MG SUNDAY/17-JUL-2019
     Route: 048
     Dates: end: 20200207
  18. LOPERAMIDE [Suspect]
     Active Substance: LOPERAMIDE
     Indication: Diarrhoea
     Dosage: 2 MILLIGRAM (1 CAPSULE UP TO 4 TIMES A DAY)
     Route: 065
  19. LOPERAMIDE [Suspect]
     Active Substance: LOPERAMIDE
     Indication: Prophylaxis
  20. LANSOPRAZOLE [Suspect]
     Active Substance: LANSOPRAZOLE
     Indication: Product used for unknown indication
     Dosage: UNK
     Route: 065
  21. DEXAMETHASONE [Suspect]
     Active Substance: DEXAMETHASONE
     Indication: Product used for unknown indication
     Dosage: UNK
     Route: 065
  22. DEXAMETHASONE [Suspect]
     Active Substance: DEXAMETHASONE
     Dosage: 9.2 MILLIGRAM, QD (4.6 MG)/07-FEB-2020
     Route: 048
     Dates: end: 20200221
  23. DEXAMETHASONE [Suspect]
     Active Substance: DEXAMETHASONE
     Dosage: 3.5 MILLIGRAM, QD/12-FEB-2020
     Route: 048
  24. DEXAMETHASONE [Suspect]
     Active Substance: DEXAMETHASONE
     Dosage: 1.6 MILLIGRAM, QD (1.6 MG, QD)/15-FEB-2020
     Route: 048
     Dates: end: 20200221
  25. DEXAMETHASONE [Suspect]
     Active Substance: DEXAMETHASONE
     Dosage: 7 MILLIGRAM, QD (3.5 MG, BID)/10-FEB-2020
     Route: 048
  26. DEXAMETHASONE [Suspect]
     Active Substance: DEXAMETHASONE
     Dosage: VARIABLE 4MG BD WEANED TO 0.5MG SECOND DAILY/01-NOV-2019
     Route: 048
     Dates: end: 20200221
  27. DEXAMETHASONE [Suspect]
     Active Substance: DEXAMETHASONE
     Dosage: 1.6 MILLIGRAM, QD (1.6 MG, QD)/15-FEB-2021
     Route: 048
     Dates: end: 20210221
  28. DEXAMETHASONE [Suspect]
     Active Substance: DEXAMETHASONE
     Dosage: 3.5 MILLIGRAM, BID/10-FEB-2021
     Route: 048
  29. VANDETANIB [Suspect]
     Active Substance: VANDETANIB
     Indication: Brain stem glioma
     Dosage: 65 MILLIGRAM/SQ. METER, QD/09-OCT-2019
     Route: 048
     Dates: end: 20191014
  30. VANDETANIB [Suspect]
     Active Substance: VANDETANIB
     Dosage: 54 MILLIGRAM/SQ. METER, QD (54 MG/M2, QD)/12-FEB-2020
     Route: 048
     Dates: end: 20200302
  31. VANDETANIB [Suspect]
     Active Substance: VANDETANIB
     Dosage: 100 MILLIGRAM, QOD (100 MG, CYCLICAL))/12-FEB-2020
     Route: 048
     Dates: end: 20200302
  32. VANDETANIB [Suspect]
     Active Substance: VANDETANIB
     Dosage: 65 MILLIGRAM/SQ. METER, QD/16-MAR-2020
     Route: 048
     Dates: end: 20200420
  33. VANDETANIB [Suspect]
     Active Substance: VANDETANIB
     Dosage: 100 MILLIGRAM, QOD (65MG/M2)/09-OCT-2019
     Route: 048
     Dates: end: 20191014
  34. VANDETANIB [Suspect]
     Active Substance: VANDETANIB
     Dosage: 100 MILLIGRAM, QOD (65MG/M2)/18-OCT-2019
     Route: 048
     Dates: end: 20200207
  35. VANDETANIB [Suspect]
     Active Substance: VANDETANIB
     Dosage: 100 MILLIGRAM, QOD
     Route: 048
  36. VANDETANIB [Suspect]
     Active Substance: VANDETANIB
     Dosage: 100 MILLIGRAM, QOD/16-MAR-2020
     Route: 048
     Dates: end: 20200420
  37. VANDETANIB [Suspect]
     Active Substance: VANDETANIB
     Dosage: 100 MILLIGRAM, Q2W/12-FEB-2020
     Route: 065
     Dates: end: 20200302
  38. VANDETANIB [Suspect]
     Active Substance: VANDETANIB
     Dosage: 65 MG/M2, QOW/16-MAR-2020
     Route: 048
     Dates: end: 20200420
  39. VANDETANIB [Suspect]
     Active Substance: VANDETANIB
     Dosage: 100 MG, QOW/12-FEB-2020
     Route: 048
     Dates: end: 20200302
  40. AFINITOR [Suspect]
     Active Substance: EVEROLIMUS
     Indication: Brain stem glioma
     Dosage: (5 MG MON TO SAT AND 2.5 MG SUNDAY)/17-JUL-2019
     Route: 048
     Dates: end: 20191014
  41. AFINITOR [Suspect]
     Active Substance: EVEROLIMUS
     Dosage: 5 MG, MON/WED/FRI;2.5 MG TUE/THU/SAT/SUN/13-FEB-2020
     Route: 048
  42. AFINITOR [Suspect]
     Active Substance: EVEROLIMUS
     Dosage: 5 MG MONDAY TO SATURDAY AND 2.5 MG SUNDAY/17-JUL-2019
     Route: 048
     Dates: end: 20200207
  43. AFINITOR [Suspect]
     Active Substance: EVEROLIMUS
     Dosage: (5 MG MON/WED/FRI;2.5 MG TUE/THU/SAT/SUN)/18-JUL-2019
     Route: 048
     Dates: end: 20200207
  44. AFINITOR [Suspect]
     Active Substance: EVEROLIMUS
     Dosage: ONCE A DAY/01-OCT-2019
     Route: 048
  45. AFINITOR [Suspect]
     Active Substance: EVEROLIMUS
     Dosage: 5 MILLIGRAM,  MONDAY TO SATURDAY/12-FEB-2020
     Route: 048
  46. AFINITOR [Suspect]
     Active Substance: EVEROLIMUS
     Dosage: 5 MILLIGRAM, ONCE A DAY/07-FEB-2021
     Route: 048
  47. AFINITOR [Suspect]
     Active Substance: EVEROLIMUS
     Dosage: 2.5 MG, BID/13-FEB-2020
     Route: 048
  48. AFINITOR [Suspect]
     Active Substance: EVEROLIMUS
     Dosage: 5 MG, QD MON,WED, FRI AND 2.5 MG ON TUE,THURS,SAT, SUN/17-JUL-2019
     Route: 048
     Dates: end: 20191014
  49. AFINITOR [Suspect]
     Active Substance: EVEROLIMUS
     Dosage: 2.5 MG TUESDAY/THURSDAY/SATURDAY/SUNDAY/07-FEB-2021
     Route: 048
  50. AFINITOR [Suspect]
     Active Substance: EVEROLIMUS
     Dosage: 2.5 MG, QD TUE/THU/SAT/SUN/12-FEB-2020
     Route: 048
  51. ACETAMINOPHEN [Suspect]
     Active Substance: ACETAMINOPHEN
     Indication: Product used for unknown indication
     Dosage: UNK, PRN, QDS
     Route: 048
  52. COTRIMOXAZOLE [Concomitant]
     Active Substance: SULFAMETHOXAZOLE\TRIMETHOPRIM
     Indication: Product used for unknown indication
     Dosage: (360 MG, BID (7.5 ML) ON SATURDAYS AND SUNDAYS)
     Route: 048
  53. COTRIMOXAZOLE [Concomitant]
     Active Substance: SULFAMETHOXAZOLE\TRIMETHOPRIM
     Dosage: 360 MG, 1X/DAY
  54. COTRIMOXAZOLE [Concomitant]
     Active Substance: SULFAMETHOXAZOLE\TRIMETHOPRIM
     Dosage: UNK
  55. COTRIMOXAZOLE [Concomitant]
     Active Substance: SULFAMETHOXAZOLE\TRIMETHOPRIM
     Dosage: 360 MILLIGRAM
     Route: 065
  56. COTRIMOXAZOLE [Concomitant]
     Active Substance: SULFAMETHOXAZOLE\TRIMETHOPRIM
     Dosage: 360 MILLIGRAM
     Route: 065
  57. COTRIMOXAZOLE [Concomitant]
     Active Substance: SULFAMETHOXAZOLE\TRIMETHOPRIM
     Dosage: 360 MG BD ON SAT/SUN ONLY;
     Route: 065
  58. COTRIMOXAZOLE [Concomitant]
     Active Substance: SULFAMETHOXAZOLE\TRIMETHOPRIM
     Dosage: UNK
  59. DEXAMETHASONE [Concomitant]
     Active Substance: DEXAMETHASONE
     Dosage: 4 MILLIGRAM, BID(VARIABLE; 4MG BD WEANED TO 0.5MG SECOND DAILY)/01-NOV-2019
     Dates: end: 20200221
  60. DEXAMETHASONE [Concomitant]
     Active Substance: DEXAMETHASONE
     Dosage: 1.6 MILLIGRAM, QD/15-FEB-2020
     Dates: end: 20200221
  61. DEXAMETHASONE [Concomitant]
     Active Substance: DEXAMETHASONE
     Dosage: 7 MG, QD (3.5 MG, BID)/10-FEB-2020
  62. DEXAMETHASONE [Concomitant]
     Active Substance: DEXAMETHASONE
     Dosage: UNK
  63. DEXAMETHASONE [Concomitant]
     Active Substance: DEXAMETHASONE
     Dosage: 9.2 MG, QD (4.6 MG)/07-FEB-2020
     Route: 048
     Dates: end: 20200221
  64. DEXAMETHASONE [Concomitant]
     Active Substance: DEXAMETHASONE
     Dosage: WEANED TO 0.5MG SECOND DAILY/21-FEB-2020
     Route: 048
  65. DEXAMETHASONE [Concomitant]
     Active Substance: DEXAMETHASONE
     Dosage: 3.5 MILLIGRAM, QD/12-FEB-2020
     Route: 048
     Dates: end: 20200221
  66. DEXAMETHASONE [Concomitant]
     Active Substance: DEXAMETHASONE
     Dosage: 4 MILLIGRAM, BID/01-NOV-2019
     Dates: end: 20200211
  67. RANITIDINE [Concomitant]
     Active Substance: RANITIDINE
     Indication: Product used for unknown indication
     Dosage: 50 MILLIGRAM, BID/18-OCT-2019
     Route: 065

REACTIONS (27)
  - Brain stem glioma [Not Recovered/Not Resolved]
  - Hemiparesis [Recovered/Resolved]
  - Facial paralysis [Recovered/Resolved]
  - Ataxia [Recovered/Resolved]
  - White blood cell count decreased [Not Recovered/Not Resolved]
  - Electrocardiogram QT prolonged [Recovered/Resolved]
  - Hypertension [Not Recovered/Not Resolved]
  - Malignant neoplasm progression [Unknown]
  - Gastrooesophageal reflux disease [Recovered/Resolved]
  - Flatulence [Recovered/Resolved]
  - Blood triglycerides increased [Unknown]
  - Hypophosphataemia [Recovered/Resolved]
  - Blood cholesterol increased [Not Recovered/Not Resolved]
  - Myoclonus [Recovered/Resolved]
  - Neutrophil count decreased [Recovered/Resolved]
  - Ocular hyperaemia [Recovered/Resolved]
  - Hypophagia [Not Recovered/Not Resolved]
  - Blood creatinine increased [Unknown]
  - Lymphocyte count decreased [Not Recovered/Not Resolved]
  - Disease progression [Unknown]
  - Reflux gastritis [Recovered/Resolved]
  - Product use in unapproved indication [Unknown]
  - Medication error [Unknown]
  - Abdominal distension [Recovered/Resolved]
  - Mucosal inflammation [Recovered/Resolved]
  - Alanine aminotransferase increased [Recovered/Resolved]
  - Off label use [Unknown]

NARRATIVE: CASE EVENT DATE: 20190111
